FAERS Safety Report 6600412-1 (Version None)
Quarter: 2010Q1

REPORT INFORMATION
  Report Type: 
  Country: None (occurrence: None)
  Receive Date: 20100224
  Receipt Date: 20100223
  Transmission Date: 20100710
  Serious: No
  Sender: FDA-Public Use
  Company Number: US-B.I. PHARMACEUTICALS,INC./RIDGEFIELD-2009-BP-13370BP

PATIENT
  Sex: Female

DRUGS (8)
  1. SPIRIVA [Suspect]
     Indication: EMPHYSEMA
     Dosage: 18 MCG
     Route: 055
     Dates: start: 20090601
  2. AVAPRO [Concomitant]
     Indication: HYPERTENSION
  3. CORGARD [Concomitant]
     Indication: BLOOD CHOLESTEROL INCREASED
  4. ZOCOR [Concomitant]
     Indication: BLOOD CHOLESTEROL INCREASED
  5. ASPIRIN [Concomitant]
     Indication: PROPHYLAXIS
  6. LORAZEPAM [Concomitant]
     Indication: SLEEP DISORDER
  7. LEXAPRO [Concomitant]
     Indication: DEPRESSION
  8. PERCOCET [Concomitant]
     Indication: BACK PAIN

REACTIONS (1)
  - DRUG INEFFECTIVE [None]
